FAERS Safety Report 17616760 (Version 1)
Quarter: 2020Q2

REPORT INFORMATION
  Report Type: Spontaneous
  Country: US (occurrence: US)
  Receive Date: 20200402
  Receipt Date: 20200402
  Transmission Date: 20200713
  Serious: No
  Sender: FDA-Public Use
  Company Number: US-NEPHRON STERILE COMPOUNDING CENTER-2082251

PATIENT
  Sex: Female

DRUGS (1)
  1. FENTANYL CITRATE 400MCG AND ROPIVACAINE HYDROCHLORIDE 200MG IN NS 200M [Suspect]
     Active Substance: FENTANYL\ROPIVACAINE
     Indication: LABOUR PAIN
     Route: 008

REACTIONS (1)
  - Drug ineffective [None]
